FAERS Safety Report 7014752-8 (Version None)
Quarter: 2010Q3

REPORT INFORMATION
  Report Type: 
  Country: None (occurrence: None)
  Receive Date: 20100927
  Receipt Date: 20100916
  Transmission Date: 20110219
  Serious: Yes (Other)
  Sender: FDA-Public Use
  Company Number: US-ROCHE-728747

PATIENT
  Sex: Female

DRUGS (4)
  1. AVASTIN [Suspect]
     Dosage: START DATE: NOVEMBER/DECEMBER 2009.
     Route: 042
     Dates: start: 20091101, end: 20100201
  2. AVASTIN [Suspect]
     Dosage: STOP DATE: LAST WEEK FROM 16 SEPTEMBER 2010.
     Route: 042
     Dates: start: 20100701, end: 20100901
  3. ABRAXANE [Concomitant]
  4. KEPPRA [Concomitant]

REACTIONS (4)
  - BLINDNESS UNILATERAL [None]
  - EYE DISORDER [None]
  - PARAESTHESIA [None]
  - VISUAL IMPAIRMENT [None]
